FAERS Safety Report 18801513 (Version 2)
Quarter: 2021Q1

REPORT INFORMATION
  Report Type: Spontaneous
  Country: JP (occurrence: JP)
  Receive Date: 20210128
  Receipt Date: 20210325
  Transmission Date: 20210419
  Serious: Yes (Hospitalization, Other)
  Sender: FDA-Public Use
  Company Number: JP-JNJFOC-20210138698

PATIENT
  Age: 72 Year
  Sex: Female
  Weight: 48.2 kg

DRUGS (5)
  1. XARELTO [Suspect]
     Active Substance: RIVAROXABAN
     Indication: JUGULAR VEIN THROMBOSIS
     Dosage: 15 MG, QD
     Route: 048
     Dates: start: 20200615, end: 20210114
  2. CLARITHROMYCIN. [Concomitant]
     Active Substance: CLARITHROMYCIN
     Indication: PYODERMA
     Dosage: DAILY DOSE 2 DF
     Route: 048
     Dates: start: 20200914
  3. FUROSEMIDE. [Concomitant]
     Active Substance: FUROSEMIDE
     Indication: OEDEMA
     Dosage: DAILY DOSE 2 DF
     Route: 048
     Dates: start: 20201130
  4. ACETAMINOPHEN. [Concomitant]
     Active Substance: ACETAMINOPHEN
     Indication: CANCER PAIN
     Dosage: DAILY DOSE 2 DF
     Route: 048
     Dates: start: 20201130
  5. BORRAZA?G [Concomitant]
     Active Substance: LIDOCAINE\TRIBENOSIDE
     Indication: HAEMORRHOIDS
     Dosage: 2 DRUGS DAILY, ANAL ADMINISTRATION
     Dates: start: 20201130

REACTIONS (2)
  - Intra-abdominal haemorrhage [Recovered/Resolved]
  - Metastases to peritoneum [Unknown]

NARRATIVE: CASE EVENT DATE: 20210114
